FAERS Safety Report 5596545-1 (Version None)
Quarter: 2007Q4

REPORT INFORMATION
  Report Type: 
  Country: None (occurrence: None)
  Receive Date: 20071219
  Receipt Date: 20071016
  Transmission Date: 20080405
  Serious: No
  Sender: FDA-Public Use
  Company Number: US-WYE-H00743207

PATIENT
  Age: 78 Year
  Sex: Male
  Weight: 63.56 kg

DRUGS (3)
  1. TORISEL [Suspect]
     Indication: RENAL CELL CARCINOMA STAGE UNSPECIFIED
     Dosage: 25MG/60 MINUTES, INTRAVENOUS
     Route: 042
     Dates: start: 20070901
  2. AVASTIN [Concomitant]
  3. NORVASC [Concomitant]

REACTIONS (3)
  - EXFOLIATIVE RASH [None]
  - RASH ERYTHEMATOUS [None]
  - RASH PRURITIC [None]
